FAERS Safety Report 8950332 (Version 1)
Quarter: 2012Q4

REPORT INFORMATION
  Report Type: Spontaneous
  Country: US (occurrence: None)
  Receive Date: 20121130
  Receipt Date: 20121130
  Transmission Date: 20130627
  Serious: Yes (Hospitalization)
  Sender: FDA-Public Use
  Company Number: None

PATIENT
  Age: 61 Year
  Sex: Male
  Weight: 89.1 kg

DRUGS (1)
  1. LISINOPRIL	10 MG [Suspect]
     Indication: BLOOD PRESSURE
     Route: 048
     Dates: start: 20121126, end: 20121126

REACTIONS (4)
  - Swelling face [None]
  - Speech disorder [None]
  - Dyspnoea [None]
  - Palatal oedema [None]
